FAERS Safety Report 4678243-1 (Version None)
Quarter: 2005Q2

REPORT INFORMATION
  Report Type: 
  Country: None (occurrence: None)
  Receive Date: 20050527
  Receipt Date: 20050505
  Transmission Date: 20051028
  Serious: Yes (Hospitalization)
  Sender: FDA-Public Use
  Company Number: 1576

PATIENT
  Age: 60 Year
  Sex: Female

DRUGS (2)
  1. CIPROFLOXACIN [Suspect]
     Indication: URINARY TRACT INFECTION
     Dosage: 250 MG , BID, PO
     Route: 048
  2. IMOVANE [Concomitant]

REACTIONS (2)
  - ABDOMINAL PAIN [None]
  - DRUG INEFFECTIVE [None]
